FAERS Safety Report 17004110 (Version 1)
Quarter: 2019Q4

REPORT INFORMATION
  Report Type: Spontaneous
  Country: GB (occurrence: GB)
  Receive Date: 20191107
  Receipt Date: 20191107
  Transmission Date: 20200122
  Serious: Yes (Other)
  Sender: FDA-Public Use
  Company Number: GB-GLAXOSMITHKLINE-GB2019199685

PATIENT
  Age: 15 Year
  Sex: Female
  Weight: 121 kg

DRUGS (1)
  1. SALBUTAMOL [Suspect]
     Active Substance: ALBUTEROL
     Indication: PRODUCT USED FOR UNKNOWN INDICATION
     Dosage: 1210 ?G, UNK
     Route: 051

REACTIONS (2)
  - Hyperhidrosis [Unknown]
  - Tachycardia [Unknown]

NARRATIVE: CASE EVENT DATE: 20180501
